FAERS Safety Report 5362317-6 (Version None)
Quarter: 2007Q2

REPORT INFORMATION
  Report Type: 
  Country: None (occurrence: None)
  Receive Date: 20070619
  Receipt Date: 20070614
  Transmission Date: 20071010
  Serious: Yes (Other)
  Sender: FDA-Public Use
  Company Number: B0475062A

PATIENT
  Age: 6 Year
  Sex: Male

DRUGS (2)
  1. ZOVIRAX [Suspect]
     Indication: DRUG USE FOR UNKNOWN INDICATION
     Dosage: 80MG PER DAY
     Route: 042
     Dates: start: 20070101, end: 20070604
  2. VICCLOX [Concomitant]
     Route: 042
     Dates: start: 20070605

REACTIONS (6)
  - EPISTAXIS [None]
  - HAEMATURIA [None]
  - HAEMOGLOBIN DECREASED [None]
  - LIP HAEMORRHAGE [None]
  - PLATELET COUNT DECREASED [None]
  - PURPURA [None]
